FAERS Safety Report 13372226 (Version 1)
Quarter: 2017Q1

REPORT INFORMATION
  Report Type: Spontaneous
  Country: US (occurrence: US)
  Receive Date: 20170324
  Receipt Date: 20170324
  Transmission Date: 20170429
  Serious: Yes (Life-Threatening)
  Sender: FDA-Public Use
  Company Number: None

PATIENT
  Age: 29 Year
  Sex: Female
  Weight: 44 kg

DRUGS (1)
  1. JUNEL FE 1/20 [Suspect]
     Active Substance: ETHINYL ESTRADIOL\NORETHINDRONE ACETATE
     Indication: CONTRACEPTION
     Route: 048
     Dates: start: 20161214, end: 20170319

REACTIONS (6)
  - Crying [None]
  - Mood swings [None]
  - Social problem [None]
  - Menstruation irregular [None]
  - Abnormal behaviour [None]
  - Depression [None]

NARRATIVE: CASE EVENT DATE: 20170315
